FAERS Safety Report 6225345-4 (Version None)
Quarter: 2009Q2

REPORT INFORMATION
  Report Type: 
  Country: None (occurrence: None)
  Receive Date: 20090612
  Receipt Date: 20090415
  Transmission Date: 20091009
  Serious: No
  Sender: FDA-Public Use
  Company Number: US-ABBOTT-09P-163-0568724-00

PATIENT
  Sex: Female
  Weight: 53.572 kg

DRUGS (4)
  1. HUMIRA [Suspect]
     Indication: RHEUMATOID ARTHRITIS
     Dates: start: 20060101, end: 20080401
  2. HUMIRA [Suspect]
     Dates: start: 20080401, end: 20080501
  3. HUMIRA [Suspect]
     Dates: start: 20080501, end: 20090201
  4. CELEBREX [Concomitant]
     Indication: RHEUMATOID ARTHRITIS
     Dosage: PRN

REACTIONS (1)
  - RHEUMATOID ARTHRITIS [None]
